FAERS Safety Report 5228145-7 (Version None)
Quarter: 2007Q1

REPORT INFORMATION
  Report Type: 
  Country: None (occurrence: None)
  Receive Date: 20070130
  Receipt Date: 20070122
  Transmission Date: 20070707
  Serious: Yes (Other)
  Sender: FDA-Public Use
  Company Number: 2007304226

PATIENT
  Age: 56 Year
  Sex: Male
  Weight: 115.6672 kg

DRUGS (1)
  1. BENGAY ULTRA STRENGTH PATCH (MENTHOL) [Suspect]
     Indication: MUSCLE TIGHTNESS
     Dosage: 1 PATCH ONCE FOR FOUR HOURS, TOPICAL
     Route: 061
     Dates: start: 20070107, end: 20070107

REACTIONS (5)
  - APPLICATION SITE DISCOLOURATION [None]
  - APPLICATION SITE IRRITATION [None]
  - BLISTER [None]
  - BURNS SECOND DEGREE [None]
  - CAUSTIC INJURY [None]
